FAERS Safety Report 16356102 (Version 2)
Quarter: 2019Q2

REPORT INFORMATION
  Report Type: Report from Study
  Country: None (occurrence: US)
  Receive Date: 20190526
  Receipt Date: 20190613
  Transmission Date: 20190711
  Serious: Yes (Hospitalization, Other)
  Sender: FDA-Public Use
  Company Number: US-ABBVIE-19K-163-2796398-00

PATIENT
  Sex: Female

DRUGS (1)
  1. HUMIRA [Suspect]
     Active Substance: ADALIMUMAB
     Indication: PRODUCT USED FOR UNKNOWN INDICATION
     Dosage: CITRATE FREE
     Route: 058

REACTIONS (6)
  - Dyspnoea [Recovering/Resolving]
  - Fall [Unknown]
  - Mobility decreased [Recovering/Resolving]
  - Food poisoning [Unknown]
  - Gait inability [Recovering/Resolving]
  - Spinal compression fracture [Unknown]
